FAERS Safety Report 4355515-1 (Version None)
Quarter: 2004Q2

REPORT INFORMATION
  Report Type: 
  Country: None (occurrence: None)
  Receive Date: 20040510
  Receipt Date: 20040422
  Transmission Date: 20050107
  Serious: Yes (Hospitalization)
  Sender: FDA-Public Use
  Company Number: JP-BRISTOL-MYERS SQUIBB COMPANY-12581468

PATIENT
  Age: 76 Year
  Sex: Male

DRUGS (19)
  1. GATIFLO TABS [Suspect]
     Indication: PNEUMONIA
     Route: 048
     Dates: start: 20040316, end: 20040320
  2. MARZULENE-S [Concomitant]
     Route: 048
     Dates: start: 20040310
  3. APLACE [Concomitant]
     Route: 048
     Dates: start: 20040310
  4. SODIUM BICARBONATE [Concomitant]
     Route: 048
     Dates: start: 20040310
  5. KREMEZIN [Concomitant]
     Route: 048
     Dates: start: 20040310
  6. TALION [Concomitant]
     Route: 048
     Dates: start: 20040310
  7. RESPLEN [Concomitant]
     Route: 048
     Dates: start: 20040310
  8. MUCOSERUM [Concomitant]
     Route: 048
     Dates: start: 20040310
  9. CALCIUM CARBONATE [Concomitant]
     Route: 048
     Dates: start: 20040310
  10. THEO-DUR [Concomitant]
     Route: 048
     Dates: start: 20040310
  11. ZADITEN [Concomitant]
     Route: 048
     Dates: start: 20040310
  12. PIRENOXINE SODIUM [Concomitant]
     Route: 047
     Dates: start: 20040308, end: 20040308
  13. ADONA [Concomitant]
     Route: 048
     Dates: start: 20040309, end: 20040401
  14. ADONA [Concomitant]
     Route: 042
     Dates: start: 20040316, end: 20040323
  15. FLURBIPROFEN [Concomitant]
     Route: 061
     Dates: start: 20040323, end: 20040323
  16. CRAVIT [Concomitant]
     Route: 048
     Dates: start: 20040320, end: 20040401
  17. SULPERAZON [Concomitant]
  18. TRANSAMIN [Concomitant]
     Route: 042
     Dates: start: 20040316, end: 20040323
  19. ESPO [Concomitant]
     Dosage: UNITS
     Route: 058
     Dates: start: 20040313, end: 20040313

REACTIONS (1)
  - HYPOGLYCAEMIA [None]
